FAERS Safety Report 19251260 (Version 1)
Quarter: 2021Q2

REPORT INFORMATION
  Report Type: Spontaneous
  Country: JP (occurrence: JP)
  Receive Date: 20210513
  Receipt Date: 20210513
  Transmission Date: 20210717
  Serious: Yes (Death, Hospitalization, Other)
  Sender: FDA-Public Use
  Company Number: JP-INGENUS PHARMACEUTICALS, LLC-2021INF000035

PATIENT
  Age: 72 Year
  Sex: Male
  Weight: 67.3 kg

DRUGS (6)
  1. GIMERACIL [Suspect]
     Active Substance: GIMERACIL
     Indication: GASTRIC CANCER
     Dosage: UNK
     Route: 065
  2. EDOXABAN [Concomitant]
     Active Substance: EDOXABAN TOSYLATE
     Indication: DEEP VEIN THROMBOSIS
     Dosage: 15 MILLIGRAM, QD
     Route: 048
  3. PACLITAXEL. [Suspect]
     Active Substance: PACLITAXEL
     Indication: GASTRIC CANCER
     Dosage: FIVE COOLS WEEKLY
     Route: 065
  4. OXALIPLATIN. [Suspect]
     Active Substance: OXALIPLATIN
     Indication: GASTRIC CANCER
     Dosage: UNK
     Route: 065
  5. OTERACIL POTASSIUM [Suspect]
     Active Substance: OTERACIL POTASSIUM
     Indication: GASTRIC CANCER
     Dosage: UNK
     Route: 065
  6. TEGAFUR [Suspect]
     Active Substance: TEGAFUR
     Indication: GASTRIC CANCER
     Dosage: UNK
     Route: 065

REACTIONS (2)
  - Ascites [Fatal]
  - Glomerulonephritis membranoproliferative [Fatal]
